FAERS Safety Report 5717421-7 (Version None)
Quarter: 2008Q2

REPORT INFORMATION
  Report Type: 
  Country: None (occurrence: None)
  Receive Date: 20080424
  Receipt Date: 20080424
  Transmission Date: 20081010
  Serious: Yes (Other)
  Sender: FDA-Public Use
  Company Number: None

PATIENT
  Age: 48 Year
  Sex: Female
  Weight: 59.8748 kg

DRUGS (1)
  1. EFFEXOR [Suspect]

REACTIONS (3)
  - DRUG WITHDRAWAL SYNDROME [None]
  - EUPHORIC MOOD [None]
  - FEELING ABNORMAL [None]
